FAERS Safety Report 4887304-3 (Version None)
Quarter: 2005Q4

REPORT INFORMATION
  Report Type: 
  Country: None (occurrence: None)
  Receive Date: 20051221
  Receipt Date: 20051025
  Transmission Date: 20060501
  Serious: No
  Sender: FDA-Public Use
  Company Number: US-YAMANOUCHI-YPA20050501

PATIENT
  Age: 73 Year
  Sex: Male
  Weight: 81.6475 kg

DRUGS (10)
  1. VESICARE [Suspect]
     Indication: HYPERTONIC BLADDER
     Dosage: 5 MG QD PO
     Route: 048
     Dates: start: 20050101
  2. PROTONIX [Suspect]
     Dates: start: 20050901, end: 20050901
  3. LEVOTHROID [Concomitant]
  4. HYDROCORTISONE [Concomitant]
  5. LANOXIN [Concomitant]
  6. COUMADIN [Concomitant]
  7. BETA-BLOCKER [Concomitant]
  8. ALPHA-BLOCKER [Concomitant]
  9. ALTACE [Concomitant]
  10. TOPROL-XL [Concomitant]

REACTIONS (3)
  - DRUG INEFFECTIVE [None]
  - DRUG INTERACTION [None]
  - DRY MOUTH [None]
